FAERS Safety Report 11655140 (Version 2)
Quarter: 2015Q4

REPORT INFORMATION
  Report Type: Spontaneous
  Country: US (occurrence: US)
  Receive Date: 20151023
  Receipt Date: 20151102
  Transmission Date: 20160304
  Serious: Yes (Other)
  Sender: FDA-Public Use
  Company Number: US-BAYER-2015-446195

PATIENT
  Age: 53 Year
  Sex: Female
  Weight: 58 kg

DRUGS (3)
  1. DEPO-ESTRADIOL [Concomitant]
     Active Substance: ESTRADIOL CYPIONATE
     Indication: HORMONE REPLACEMENT THERAPY
     Dosage: UNK
     Route: 030
  2. CLIMARA [Suspect]
     Active Substance: ESTRADIOL
     Indication: HORMONE REPLACEMENT THERAPY
     Dosage: 1 DF, OW
     Route: 062
     Dates: start: 1999, end: 201509
  3. LORTAB [Concomitant]
     Active Substance: ACETAMINOPHEN\HYDROCODONE BITARTRATE
     Indication: PAIN

REACTIONS (17)
  - Osteoporotic fracture [None]
  - Back pain [Recovered/Resolved]
  - Osteoporosis [None]
  - Hot flush [Not Recovered/Not Resolved]
  - Headache [Recovered/Resolved]
  - Tinnitus [Recovered/Resolved]
  - Product adhesion issue [None]
  - Product adhesion issue [None]
  - Feeling abnormal [Not Recovered/Not Resolved]
  - Stress [Recovered/Resolved]
  - Nervousness [Not Recovered/Not Resolved]
  - Application site irritation [None]
  - Migraine [Recovered/Resolved]
  - Suicidal ideation [Not Recovered/Not Resolved]
  - Therapy cessation [None]
  - Hot flush [Recovered/Resolved]
  - Mental impairment [Not Recovered/Not Resolved]

NARRATIVE: CASE EVENT DATE: 2015
